FAERS Safety Report 7897311-4 (Version None)
Quarter: 2011Q4

REPORT INFORMATION
  Report Type: 
  Country: None (occurrence: None)
  Receive Date: 20111107
  Receipt Date: 20111031
  Transmission Date: 20120403
  Serious: Yes (Hospitalization, Other)
  Sender: FDA-Public Use
  Company Number: PHHY2011AR95496

PATIENT
  Sex: Female

DRUGS (1)
  1. ONBREZ [Suspect]
     Indication: CHRONIC OBSTRUCTIVE PULMONARY DISEASE
     Dosage: 1 DF, QD

REACTIONS (7)
  - APHONIA [None]
  - DYSPNOEA [None]
  - URINARY INCONTINENCE [None]
  - ASPHYXIA [None]
  - OXYGEN SATURATION DECREASED [None]
  - COUGH [None]
  - FATIGUE [None]
